FAERS Safety Report 13905607 (Version 4)
Quarter: 2018Q3

REPORT INFORMATION
  Report Type: Report from Study
  Country: CA (occurrence: CA)
  Receive Date: 20170825
  Receipt Date: 20180709
  Transmission Date: 20181010
  Serious: Yes (Death, Other)
  Sender: FDA-Public Use
  Company Number: CA-BRISTOL-MYERS SQUIBB COMPANY-BMS-2017-048944

PATIENT
  Age: 57 Year
  Sex: Male

DRUGS (9)
  1. URSODIOL. [Concomitant]
     Active Substance: URSODIOL
     Indication: PRODUCT USED FOR UNKNOWN INDICATION
     Route: 065
  2. NADOL                              /00480001/ [Concomitant]
     Indication: PRODUCT USED FOR UNKNOWN INDICATION
     Route: 065
  3. LASIX [Concomitant]
     Active Substance: FUROSEMIDE
     Indication: PRODUCT USED FOR UNKNOWN INDICATION
     Route: 065
  4. SPIRONOLACTONE. [Concomitant]
     Active Substance: SPIRONOLACTONE
     Indication: PRODUCT USED FOR UNKNOWN INDICATION
     Route: 065
  5. DEXILANT [Concomitant]
     Active Substance: DEXLANSOPRAZOLE
     Indication: PRODUCT USED FOR UNKNOWN INDICATION
     Route: 065
  6. ABATACEPT [Suspect]
     Active Substance: ABATACEPT
     Indication: RHEUMATOID ARTHRITIS
     Dosage: 1000 MG, Q4WK
     Route: 042
     Dates: start: 20170104
  7. LACTULOSE. [Concomitant]
     Active Substance: LACTULOSE
     Indication: PRODUCT USED FOR UNKNOWN INDICATION
     Route: 065
  8. AZATHIOPRIN [Concomitant]
     Active Substance: AZATHIOPRINE
     Indication: PRODUCT USED FOR UNKNOWN INDICATION
     Route: 065
  9. PLAQUENIL                          /00072602/ [Concomitant]
     Active Substance: HYDROXYCHLOROQUINE DIPHOSPHATE
     Indication: PRODUCT USED FOR UNKNOWN INDICATION
     Dosage: UNK
     Route: 065

REACTIONS (6)
  - Fatigue [Recovering/Resolving]
  - Pain [Unknown]
  - Liver disorder [Unknown]
  - Oedema peripheral [Recovering/Resolving]
  - Death [Fatal]
  - Jaundice [Unknown]

NARRATIVE: CASE EVENT DATE: 20180203
